FAERS Safety Report 15232943 (Version 6)
Quarter: 2018Q4

REPORT INFORMATION
  Report Type: Spontaneous
  Country: US (occurrence: US)
  Receive Date: 20180802
  Receipt Date: 20181207
  Transmission Date: 20190204
  Serious: No
  Sender: FDA-Public Use
  Company Number: US-PFIZER INC-2018307245

PATIENT
  Age: 64 Year
  Sex: Female
  Weight: 58 kg

DRUGS (4)
  1. TECFIDERA [Concomitant]
     Active Substance: DIMETHYL FUMARATE
     Indication: RELAPSING MULTIPLE SCLEROSIS
     Dosage: 240 MG, 2X/DAY (ONE IN THE MORNING AND IN THE EVENING)
  2. TAXOTERE [Concomitant]
     Active Substance: DOCETAXEL
     Indication: MULTIPLE SCLEROSIS
     Dosage: UNK
  3. LYRICA [Suspect]
     Active Substance: PREGABALIN
     Indication: PAIN
     Dosage: 75 MG, 2X/DAY (IN THE MORNING AND AT NIGHT)
  4. LYRICA [Suspect]
     Active Substance: PREGABALIN
     Indication: NEUROPATHY PERIPHERAL
     Dosage: 75 MG, 2X/DAY (IN THE MORNING AND AT NIGHT)
     Dates: start: 20180712, end: 201807

REACTIONS (9)
  - Muscular weakness [Unknown]
  - Fall [Unknown]
  - Contusion [Unknown]
  - Product storage error [Unknown]
  - Accident [Unknown]
  - Product dose omission [Unknown]
  - Product administration error [Unknown]
  - Head injury [Unknown]
  - Muscle spasms [Unknown]

NARRATIVE: CASE EVENT DATE: 20180712
